FAERS Safety Report 8778930 (Version 2)
Quarter: 2012Q4

REPORT INFORMATION
  Report Type: 
  Country: US (occurrence: US)
  Receive Date: 20120907
  Receipt Date: 20121112
  Transmission Date: 20130627
  Serious: Yes (Death)
  Sender: FDA-Public Use
  Company Number: US-ELI_LILLY_AND_COMPANY-US201209001003

PATIENT
  Age: 65 Year
  Sex: Female

DRUGS (8)
  1. ZYPREXA [Suspect]
     Indication: MAJOR DEPRESSION
     Dosage: 10 mg, each evening
     Route: 048
     Dates: start: 2006
  2. CYMBALTA [Suspect]
     Indication: DEPRESSION
     Dosage: 120 mg, qd
     Dates: start: 1996
  3. TRIAMTEREEN/HYDROCHLOOTTHIAZIDE [Concomitant]
     Dosage: 1 DF, qd
  4. SYNTHROID [Concomitant]
     Dosage: 0.1 mg, qd
  5. XANAX [Concomitant]
     Dosage: 1 mg, tid
  6. AMBIEN [Concomitant]
     Dosage: 10 mg, each evening
     Route: 048
  7. LORTAB [Concomitant]
     Indication: PAIN
     Dosage: 10 mg, tid
     Route: 048
  8. SOMA [Concomitant]
     Indication: PAIN
     Dosage: 50 mg, tid
     Route: 048

REACTIONS (2)
  - Death [Fatal]
  - Off label use [Unknown]
